FAERS Safety Report 17526124 (Version 1)
Quarter: 2020Q1

REPORT INFORMATION
  Report Type: Spontaneous
  Country: US (occurrence: US)
  Receive Date: 20200303
  Receipt Date: 20200303
  Transmission Date: 20200409
  Serious: Yes (Hospitalization)
  Sender: FDA-Public Use
  Company Number: None

PATIENT
  Age: 48 Year
  Sex: Female

DRUGS (6)
  1. CETIRIZINE [Concomitant]
     Active Substance: CETIRIZINE HYDROCHLORIDE
  2. CIPROFLOXACIN. [Concomitant]
     Active Substance: CIPROFLOXACIN
  3. HUMIRA [Suspect]
     Active Substance: ADALIMUMAB
     Indication: PSORIASIS
     Dosage: ?          OTHER STRENGTH:40MG/0.8ML;OTHER DOSE:1 SYR;OTHER FREQUENCY:Q2WK;?
     Route: 058
     Dates: start: 201802
  4. IBUPROFEN. [Concomitant]
     Active Substance: IBUPROFEN
  5. METRONIDAZOL [Concomitant]
     Active Substance: METRONIDAZOLE
  6. GABAPENTIN. [Concomitant]
     Active Substance: GABAPENTIN

REACTIONS (2)
  - Diverticulitis [None]
  - Gastric disorder [None]

NARRATIVE: CASE EVENT DATE: 20200212
